FAERS Safety Report 20860784 (Version 10)
Quarter: 2022Q4

REPORT INFORMATION
  Report Type: Spontaneous
  Country: US (occurrence: US)
  Receive Date: 20220523
  Receipt Date: 20221222
  Transmission Date: 20230112
  Serious: No
  Sender: FDA-Public Use
  Company Number: US-GLAXOSMITHKLINE-US2022AMR080980

PATIENT
  Age: 61 Year
  Sex: Female

DRUGS (4)
  1. ZEJULA [Suspect]
     Active Substance: NIRAPARIB
     Indication: Ovarian cancer
     Dosage: 100 MG, QD
     Dates: start: 20220514
  2. ZEJULA [Suspect]
     Active Substance: NIRAPARIB
     Dosage: 200 MG, QD
     Dates: end: 20220612
  3. ZEJULA [Suspect]
     Active Substance: NIRAPARIB
     Dosage: 100 MG, QD
     Route: 048
     Dates: start: 20220715
  4. TYLENOL [Concomitant]
     Active Substance: ACETAMINOPHEN
     Indication: Migraine
     Dosage: UNK

REACTIONS (14)
  - Dry mouth [Not Recovered/Not Resolved]
  - Peripheral swelling [Recovering/Resolving]
  - Tongue blistering [Recovered/Resolved]
  - Oral discomfort [Not Recovered/Not Resolved]
  - Pain in jaw [Recovered/Resolved]
  - Blister [Recovered/Resolved]
  - Tongue ulceration [Recovered/Resolved]
  - Fatigue [Not Recovered/Not Resolved]
  - Tongue discomfort [Recovering/Resolving]
  - Headache [Recovering/Resolving]
  - Pain in extremity [Recovering/Resolving]
  - Incorrect dose administered [Not Recovered/Not Resolved]
  - Drug monitoring procedure not performed [Unknown]
  - Off label use [Not Recovered/Not Resolved]

NARRATIVE: CASE EVENT DATE: 20220501
